FAERS Safety Report 16094211 (Version 1)
Quarter: 2019Q1

REPORT INFORMATION
  Report Type: Spontaneous
  Country: US (occurrence: US)
  Receive Date: 20190215
  Receipt Date: 20190215
  Transmission Date: 20190418
  Serious: Yes (Hospitalization)
  Sender: FDA-Public Use
  Company Number: None

PATIENT
  Age: 69 Year
  Weight: 85.3 kg

DRUGS (2)
  1. NIVOLUMAB [Suspect]
     Active Substance: NIVOLUMAB
     Indication: SQUAMOUS CELL CARCINOMA
     Dosage: 240 MG DAYS 1, 15 OF CYCLE IV
     Route: 042
     Dates: start: 20181019, end: 20190129
  2. LIRILUMAB [Suspect]
     Active Substance: LIRILUMAB
     Indication: SQUAMOUS CELL CARCINOMA
     Dosage: 240 MG DAY 1 OF CYCLE IV
     Route: 042
     Dates: start: 20181019, end: 20190129

REACTIONS (7)
  - Oedema [None]
  - Procedural pain [None]
  - Soft tissue flap operation [None]
  - Myositis [None]
  - Cellulitis [None]
  - Seroma [None]
  - Postoperative abscess [None]

NARRATIVE: CASE EVENT DATE: 20190214
